FAERS Safety Report 6935534-9 (Version None)
Quarter: 2010Q3

REPORT INFORMATION
  Report Type: 
  Country: None (occurrence: None)
  Receive Date: 20100823
  Receipt Date: 20100813
  Transmission Date: 20110219
  Serious: No
  Sender: FDA-Public Use
  Company Number: US-BIOGENIDEC-2010BI028291

PATIENT
  Age: 56 Year
  Sex: Female

DRUGS (1)
  1. TYSABRI [Suspect]
     Indication: MULTIPLE SCLEROSIS
     Route: 042
     Dates: start: 20071231

REACTIONS (5)
  - EXCORIATION [None]
  - GAIT DISTURBANCE [None]
  - MUSCLE SPASMS [None]
  - PARAESTHESIA [None]
  - SKIN ATROPHY [None]
